FAERS Safety Report 5456339-4 (Version None)
Quarter: 2007Q3

REPORT INFORMATION
  Report Type: 
  Country: None (occurrence: None)
  Receive Date: 20070918
  Receipt Date: 20070330
  Transmission Date: 20080115
  Serious: Yes (Other)
  Sender: FDA-Public Use
  Company Number: US-ASTRAZENECA-2006UW24853

PATIENT
  Age: 14872 Day
  Sex: Female
  Weight: 67.3 kg

DRUGS (3)
  1. SEROQUEL [Suspect]
     Route: 048
     Dates: start: 20000822
  2. CLOZAPINE [Concomitant]
  3. OLANZAPINE [Concomitant]

REACTIONS (2)
  - PANCREATITIS [None]
  - TYPE 2 DIABETES MELLITUS [None]
